FAERS Safety Report 8373619-3 (Version None)
Quarter: 2012Q2

REPORT INFORMATION
  Report Type: 
  Country: None (occurrence: None)
  Receive Date: 20120521
  Receipt Date: 20120322
  Transmission Date: 20120825
  Serious: Yes (Other)
  Sender: FDA-Public Use
  Company Number: US-TEVA-329298USA

PATIENT
  Sex: Female

DRUGS (1)
  1. TREANDA [Suspect]
     Route: 042

REACTIONS (2)
  - BONE MARROW FAILURE [None]
  - PANCYTOPENIA [None]
